FAERS Safety Report 14812723 (Version 1)
Quarter: 2018Q2

REPORT INFORMATION
  Report Type: Spontaneous
  Country: US (occurrence: US)
  Receive Date: 20180425
  Receipt Date: 20180425
  Transmission Date: 20180711
  Serious: Yes (Other)
  Sender: FDA-Public Use
  Company Number: US-HORMOSAN-2017-03971

PATIENT
  Age: 14 Year
  Sex: Female

DRUGS (1)
  1. ZIPRASIDONE. [Suspect]
     Active Substance: ZIPRASIDONE
     Indication: INTERMITTENT EXPLOSIVE DISORDER
     Dosage: UNK
     Route: 065

REACTIONS (1)
  - Blood prolactin increased [Unknown]
